FAERS Safety Report 5035756-0 (Version None)
Quarter: 2006Q2

REPORT INFORMATION
  Report Type: 
  Country: None (occurrence: None)
  Receive Date: 20060526
  Receipt Date: 20060208
  Transmission Date: 20061013
  Serious: No
  Sender: FDA-Public Use
  Company Number: 221946

PATIENT
  Sex: Female

DRUGS (4)
  1. RAPTIVA [Suspect]
     Indication: PSORIASIS
     Dosage: 180 MG, 1/WEEK
     Dates: start: 20050601
  2. RAPTIVA [Suspect]
     Indication: PSORIASIS
     Dosage: 180 MG, 1/WEEK
     Dates: start: 20050801
  3. CPAP (RESPIRATORY TREATMENTS AND DEVICES) [Concomitant]
  4. OXYGEN (OXYGEN) [Concomitant]

REACTIONS (2)
  - PSORIASIS [None]
  - VAGINAL INFECTION [None]
